APPROVED DRUG PRODUCT: ENALAPRIL MALEATE AND HYDROCHLOROTHIAZIDE
Active Ingredient: ENALAPRIL MALEATE; HYDROCHLOROTHIAZIDE
Strength: 5MG;12.5MG
Dosage Form/Route: TABLET;ORAL
Application: A076116 | Product #001
Applicant: CHARTWELL RX SCIENCES LLC
Approved: Sep 19, 2001 | RLD: No | RS: No | Type: DISCN